FAERS Safety Report 12803207 (Version 1)
Quarter: 2016Q4

REPORT INFORMATION
  Report Type: Spontaneous
  Country: US (occurrence: US)
  Receive Date: 20161003
  Receipt Date: 20161003
  Transmission Date: 20170207
  Serious: No
  Sender: FDA-Public Use
  Company Number: US-PFIZER INC-2016460777

PATIENT
  Age: 66 Year
  Sex: Male

DRUGS (6)
  1. METFORMIN [Suspect]
     Active Substance: METFORMIN HYDROCHLORIDE
  2. AZITHROMYCIN ANHYDROUS. [Suspect]
     Active Substance: AZITHROMYCIN ANHYDROUS
  3. MORPHINE SULFATE. [Suspect]
     Active Substance: MORPHINE SULFATE
  4. DIAZEPAM. [Suspect]
     Active Substance: DIAZEPAM
  5. IBUPROFEN. [Suspect]
     Active Substance: IBUPROFEN
  6. ISONIAZID. [Suspect]
     Active Substance: ISONIAZID

REACTIONS (1)
  - Drug hypersensitivity [Unknown]
